FAERS Safety Report 15242658 (Version 1)
Quarter: 2018Q3

REPORT INFORMATION
  Report Type: Spontaneous
  Country: US (occurrence: US)
  Receive Date: 20180712
  Receipt Date: 20180712
  Transmission Date: 20181010
  Serious: Yes (Hospitalization)
  Sender: FDA-Public Use
  Company Number: None

PATIENT
  Age: 33 Year
  Sex: Female

DRUGS (26)
  1. ALBUTEROL. [Concomitant]
     Active Substance: ALBUTEROL
  2. MULTIVITAMIN CHW [Concomitant]
  3. OMEPRAZOLE. [Concomitant]
     Active Substance: OMEPRAZOLE
  4. TOBRAMYCIN, 300MG/5ML [Suspect]
     Active Substance: TOBRAMYCIN
     Indication: CYSTIC FIBROSIS
     Route: 055
     Dates: start: 20140219, end: 20180708
  5. LANCRELIPASE [Concomitant]
  6. SINGULAIR [Concomitant]
     Active Substance: MONTELUKAST SODIUM
  7. LEVOTHYROXIN [Concomitant]
     Active Substance: LEVOTHYROXINE
  8. MEPHYTON [Concomitant]
     Active Substance: PHYTONADIONE
  9. METOCLOPRAM [Concomitant]
     Active Substance: METOCLOPRAMIDE
  10. TOBI PODHALR [Concomitant]
  11. LANTUS [Concomitant]
     Active Substance: INSULIN GLARGINE
  12. NASONEX [Concomitant]
     Active Substance: MOMETASONE FUROATE
  13. NOVOLOG [Concomitant]
     Active Substance: INSULIN ASPART
  14. RANITIDINE. [Concomitant]
     Active Substance: RANITIDINE
  15. SUDAFED CONG [Concomitant]
  16. CALCIUM CARB CHW [Concomitant]
  17. PULMOZYME [Suspect]
     Active Substance: DORNASE ALFA
     Indication: CYSTIC FIBROSIS
     Route: 055
     Dates: start: 20150216, end: 20180708
  18. BYPROPION [Concomitant]
  19. VITAMIN E [Concomitant]
     Active Substance: .ALPHA.-TOCOPHEROL
  20. CAYSTON [Concomitant]
     Active Substance: AZTREONAM
  21. SYMBICORT [Concomitant]
     Active Substance: BUDESONIDE\FORMOTEROL FUMARATE DIHYDRATE
  22. AZITHROMYCIN ANHYDROUS. [Concomitant]
     Active Substance: AZITHROMYCIN ANHYDROUS
  23. FERREX [Concomitant]
     Active Substance: FERRIC POLYSACCHARIDE COMPLEX
  24. GABAPENTIN. [Concomitant]
     Active Substance: GABAPENTIN
  25. HYDROXYZ PAM [Concomitant]
     Active Substance: HYDROXYZINE PAMOATE
  26. XOPENEX HFA AER [Concomitant]

REACTIONS (1)
  - Intestinal obstruction [None]
